FAERS Safety Report 6915514-X (Version None)
Quarter: 2010Q3

REPORT INFORMATION
  Report Type: 
  Country: None (occurrence: None)
  Receive Date: 20100804
  Receipt Date: 20100720
  Transmission Date: 20110219
  Serious: Yes (Hospitalization)
  Sender: FDA-Public Use
  Company Number: 2010P1000413

PATIENT
  Age: 36 Year
  Sex: Female
  Weight: 55.3388 kg

DRUGS (19)
  1. FENTANYL CITRATE [Suspect]
     Indication: FIBROMYALGIA
     Dosage: 200MCG/HR; Q72H; TDER
     Route: 062
     Dates: start: 20030101
  2. FENTANYL CITRATE [Suspect]
  3. FENTANYL [Suspect]
     Indication: FIBROMYALGIA
  4. FENTANYL-75 [Suspect]
     Indication: FIBROMYALGIA
  5. ORENCIA [Concomitant]
  6. FENTANYL LOZENGE 1600 MCG [Concomitant]
  7. LYRICA [Concomitant]
  8. RITALIN-SR [Concomitant]
  9. ATENOLOL [Concomitant]
  10. PLAQUENIL [Concomitant]
  11. NABUMETONE [Concomitant]
  12. SULFASALAZINE [Concomitant]
  13. TIGAN [Concomitant]
  14. ZANAFLEX [Concomitant]
  15. CLARINEX [Concomitant]
  16. LIDODERM [Concomitant]
  17. AMBIEN [Concomitant]
  18. PHENOBARBITAL/HYSO ELIXIR [Concomitant]
  19. PRILOSEC [Concomitant]

REACTIONS (6)
  - ACTIVITIES OF DAILY LIVING IMPAIRED [None]
  - DEVICE LEAKAGE [None]
  - DIZZINESS [None]
  - EUPHORIC MOOD [None]
  - NAUSEA [None]
  - OVERDOSE [None]
